FAERS Safety Report 7969638-9 (Version None)
Quarter: 2011Q4

REPORT INFORMATION
  Report Type: 
  Country: None (occurrence: None)
  Receive Date: 20111122
  Receipt Date: 20110829
  Transmission Date: 20120403
  Serious: No
  Sender: FDA-Public Use
  Company Number: PHEH2011US02327

PATIENT
  Age: 46 Year
  Sex: Female

DRUGS (1)
  1. GILENYA [Suspect]
     Indication: MULTIPLE SCLEROSIS
     Dosage: 0.5 MG, QD, ORAL
     Route: 048
     Dates: start: 20110623, end: 20110821

REACTIONS (9)
  - WEIGHT DECREASED [None]
  - FATIGUE [None]
  - ABDOMINAL PAIN UPPER [None]
  - NAUSEA [None]
  - HEADACHE [None]
  - BACK PAIN [None]
  - DYSPNOEA [None]
  - DECREASED APPETITE [None]
  - COUGH [None]
